FAERS Safety Report 5404843-7 (Version None)
Quarter: 2007Q3

REPORT INFORMATION
  Report Type: 
  Country: None (occurrence: None)
  Receive Date: 20070803
  Receipt Date: 20070725
  Transmission Date: 20080115
  Serious: Yes (Other)
  Sender: FDA-Public Use
  Company Number: PHNU2007DE02649

PATIENT
  Sex: Male
  Weight: 75 kg

DRUGS (3)
  1. EXJADE [Suspect]
     Indication: HAEMOSIDEROSIS
     Dosage: 1500 MG, QD
     Dates: start: 20061124, end: 20070103
  2. EXJADE [Suspect]
     Dosage: 1000 MG, QD
     Dates: start: 20070104, end: 20070130
  3. EXJADE [Suspect]
     Dosage: 500 MG, QD
     Dates: start: 20070131, end: 20070420

REACTIONS (5)
  - BLOOD CREATININE INCREASED [None]
  - CREATININE RENAL CLEARANCE DECREASED [None]
  - RENAL FAILURE [None]
  - SERUM FERRITIN INCREASED [None]
  - UROSEPSIS [None]
